FAERS Safety Report 12617571 (Version 1)
Quarter: 2016Q3

REPORT INFORMATION
  Report Type: Spontaneous
  Country: ES (occurrence: ES)
  Receive Date: 20160803
  Receipt Date: 20160803
  Transmission Date: 20161109
  Serious: Yes (Other)
  Sender: FDA-Public Use
  Company Number: PHHY2016ES086233

PATIENT
  Age: 70 Year
  Sex: Female

DRUGS (2)
  1. EXFORGE [Suspect]
     Active Substance: AMLODIPINE BESYLATE\VALSARTAN
     Dosage: CONCENTRATION (5 MG AMLODIPINE/ 160 MG VALSARTAN)
     Route: 048
     Dates: start: 20160607, end: 20160621
  2. EXFORGE [Suspect]
     Active Substance: AMLODIPINE BESYLATE\VALSARTAN
     Indication: PRODUCT USED FOR UNKNOWN INDICATION
     Dosage: CONCENTRATION (10 MG AMLODIPINE / 160 MG VALSARTAN)
     Route: 048
     Dates: start: 20160607, end: 20160621

REACTIONS (5)
  - Oedema peripheral [Recovered/Resolved]
  - Medication error [Recovered/Resolved]
  - Headache [Recovered/Resolved]
  - Weight increased [Recovered/Resolved]
  - Hypotension [Unknown]

NARRATIVE: CASE EVENT DATE: 20160616
